FAERS Safety Report 8024514-0 (Version None)
Quarter: 2011Q4

REPORT INFORMATION
  Report Type: 
  Country: None (occurrence: None)
  Receive Date: 20111130
  Receipt Date: 20110518
  Transmission Date: 20120403
  Serious: Yes (Hospitalization)
  Sender: FDA-Public Use
  Company Number: 328435

PATIENT
  Age: 53 Year
  Sex: Male
  Weight: 90.7 kg

DRUGS (5)
  1. DIOVAN [Concomitant]
  2. VIT D (ERGOCALCIFEROL) [Concomitant]
  3. CITALOPRAM HYDROBROMIDE [Concomitant]
  4. LIPITOR [Concomitant]
  5. NOVOLOG [Suspect]
     Indication: TYPE 1 DIABETES MELLITUS
     Dosage: SLIDING SCALE, SUBCUTAN.-PUMP
     Dates: start: 20070501

REACTIONS (2)
  - DIABETIC KETOACIDOSIS [None]
  - BLOOD GLUCOSE DECREASED [None]
